FAERS Safety Report 7515556-X (Version None)
Quarter: 2011Q2

REPORT INFORMATION
  Report Type: 
  Country: None (occurrence: None)
  Receive Date: 20110601
  Receipt Date: 20100712
  Transmission Date: 20111010
  Serious: Yes (Death, Other)
  Sender: FDA-Public Use
  Company Number: US-PFIZER INC-2010047105

PATIENT
  Sex: Male

DRUGS (3)
  1. ZYPREXA [Concomitant]
     Indication: BIPOLAR DISORDER
     Dosage: 5 MG, UNK
     Dates: start: 20070501, end: 20071219
  2. CHANTIX [Suspect]
     Indication: SMOKING CESSATION THERAPY
     Dosage: UNK
     Route: 048
     Dates: start: 20070511, end: 20071219
  3. NAMENDA [Concomitant]
     Indication: DEMENTIA ALZHEIMER'S TYPE
     Dosage: 10 MG, UNK
     Dates: start: 20070501, end: 20071219

REACTIONS (3)
  - COMPLETED SUICIDE [None]
  - FATIGUE [None]
  - DEPRESSION [None]
